FAERS Safety Report 8117744-0 (Version None)
Quarter: 2011Q4

REPORT INFORMATION
  Report Type: 
  Country: None (occurrence: None)
  Receive Date: 20111227
  Receipt Date: 20101118
  Transmission Date: 20120403
  Serious: Yes (Other)
  Sender: FDA-Public Use
  Company Number: PHHY2010US30118

PATIENT
  Age: 63 Year
  Sex: Female

DRUGS (6)
  1. INSULIN (INSULIN) [Concomitant]
  2. THYROID TAB [Concomitant]
  3. FEMARA [Suspect]
     Indication: BREAST CANCER
     Dosage: 2.5 MG, QD, ORAL
     Route: 048
     Dates: start: 20100101
  4. HYDROCODONE BITARTRATE [Concomitant]
  5. METFORMIN HCL [Concomitant]
  6. GLYBURIDE [Concomitant]

REACTIONS (7)
  - NEOPLASM MALIGNANT [None]
  - DYSSTASIA [None]
  - ARTHRALGIA [None]
  - HOT FLUSH [None]
  - DIZZINESS [None]
  - SLEEP DISORDER [None]
  - FATIGUE [None]
